FAERS Safety Report 6203826-7 (Version None)
Quarter: 2009Q2

REPORT INFORMATION
  Report Type: 
  Country: None (occurrence: None)
  Receive Date: 20090522
  Receipt Date: 20090511
  Transmission Date: 20091009
  Serious: Yes (Hospitalization)
  Sender: FDA-Public Use
  Company Number: 2009S1008270

PATIENT
  Age: 9 Decade
  Sex: Female

DRUGS (1)
  1. WARFARIN SODIUM [Suspect]
     Indication: ATRIAL FIBRILLATION

REACTIONS (5)
  - ABASIA [None]
  - CARDIO-RESPIRATORY ARREST [None]
  - COMPARTMENT SYNDROME [None]
  - FALL [None]
  - INTERNATIONAL NORMALISED RATIO INCREASED [None]
